FAERS Safety Report 13178233 (Version 3)
Quarter: 2017Q3

REPORT INFORMATION
  Report Type: Spontaneous
  Country: US (occurrence: US)
  Receive Date: 20170202
  Receipt Date: 20170724
  Transmission Date: 20171127
  Serious: No
  Sender: FDA-Public Use
  Company Number: PHEH2017US003384

PATIENT
  Sex: Female

DRUGS (1)
  1. ONDANSETRON [Suspect]
     Active Substance: ONDANSETRON
     Indication: VOMITING IN PREGNANCY
     Route: 048

REACTIONS (4)
  - Injury [Unknown]
  - Product use in unapproved indication [Unknown]
  - Emotional distress [Unknown]
  - Maternal exposure during pregnancy [Unknown]
